FAERS Safety Report 9767492 (Version 4)
Quarter: 2014Q1

REPORT INFORMATION
  Report Type: Not Available
  Country: NO (occurrence: NO)
  Receive Date: 20131217
  Receipt Date: 20140327
  Transmission Date: 20141002
  Serious: Yes (Death, Hospitalization)
  Sender: FDA-Public Use
  Company Number: NO-NAPPMUNDI-GBR-2013-0016523

PATIENT
  Age: 20 Year
  Sex: Female

DRUGS (20)
  1. TRAMADOL HCL [Suspect]
     Indication: DEPRESSION
     Dosage: UNK
     Route: 065
  2. OXYNORM KAPSLER, HARDE [Suspect]
     Indication: DEPRESSION
     Dosage: UNK
     Route: 065
  3. HEROIN [Suspect]
     Indication: PRODUCT USED FOR UNKNOWN INDICATION
     Route: 065
  4. RIVOTRIL [Suspect]
     Indication: DEPRESSION
     Route: 065
  5. VIVAL [Suspect]
     Indication: DEPRESSION
     Route: 065
  6. CATAPRESAN /00171101/ [Suspect]
     Indication: DEPRESSION
     Route: 065
  7. CIPRALEX [Suspect]
     Indication: DEPRESSION
     Route: 065
  8. NOBLIGAN [Suspect]
     Indication: DEPRESSION
     Route: 065
  9. ATARAX /00058401/ [Suspect]
     Indication: DEPRESSION
     Route: 065
  10. ORFIRIL [Suspect]
     Indication: DEPRESSION
     Route: 065
  11. NOZINAN /00038601/ [Suspect]
     Indication: DEPRESSION
     Route: 065
  12. SOBRIL [Suspect]
     Indication: PRODUCT USED FOR UNKNOWN INDICATION
     Route: 065
  13. REMERON [Suspect]
     Indication: DEPRESSION
     Route: 065
  14. SEROQUEL [Suspect]
     Indication: DEPRESSION
     Route: 065
  15. CIPRAMIL /00582603/ [Suspect]
     Indication: PRODUCT USED FOR UNKNOWN INDICATION
     Route: 065
  16. PINEX FORTE [Suspect]
     Indication: DEPRESSION
     Route: 065
  17. IMOVANE [Suspect]
     Indication: DEPRESSION
     Route: 048
  18. TRUXAL /00012102/ [Suspect]
     Indication: PRODUCT USED FOR UNKNOWN INDICATION
     Route: 065
  19. SAROTEX [Suspect]
     Indication: DEPRESSION
     Route: 065
  20. LAMICTAL [Suspect]
     Indication: DEPRESSION
     Route: 065

REACTIONS (3)
  - Intentional overdose [Fatal]
  - Completed suicide [Fatal]
  - Intentional self-injury [Unknown]
